FAERS Safety Report 6469617-7 (Version None)
Quarter: 2009Q4

REPORT INFORMATION
  Report Type: 
  Country: None (occurrence: None)
  Receive Date: 20091203
  Receipt Date: 20091125
  Transmission Date: 20100525
  Serious: Yes (Disabling, Other)
  Sender: FDA-Public Use
  Company Number: US-TEVA-216520USA

PATIENT
  Sex: Male

DRUGS (2)
  1. ALPRAZOLAM,0.25MG + 0.5MG + 1MG + 2MG TABLETS USP [Suspect]
     Dates: start: 20070923
  2. OXYCODONE HCL [Suspect]
     Dates: start: 20070923

REACTIONS (13)
  - ANOXIC ENCEPHALOPATHY [None]
  - COMA [None]
  - CONVULSION [None]
  - DEPRESSION [None]
  - DRUG DISPENSING ERROR [None]
  - IMPAIRED SELF-CARE [None]
  - INCOHERENT [None]
  - INCONTINENCE [None]
  - INJURY [None]
  - LOSS OF CONSCIOUSNESS [None]
  - PAIN [None]
  - UNEVALUABLE EVENT [None]
  - UNRESPONSIVE TO STIMULI [None]
